FAERS Safety Report 8837140 (Version 1)
Quarter: 2012Q4

REPORT INFORMATION
  Report Type: 
  Country: None (occurrence: None)
  Receive Date: 20121012
  Receipt Date: 20121012
  Transmission Date: 20130627
  Serious: Yes (Other)
  Sender: FDA-Public Use
  Company Number: RS-MYLANLABS-2012S1020477

PATIENT
  Age: 2 Month
  Sex: Male

DRUGS (3)
  1. ETOPOSIDE [Suspect]
     Indication: HISTIOCYTOSIS HAEMATOPHAGIC
     Dosage: 45mg (150 mg/m2) twice weekly for 2 weeks, weekly for the first 2 months, then every 2 weeks
     Route: 065
  2. DEXAMETHASONE [Concomitant]
     Indication: HISTIOCYTOSIS HAEMATOPHAGIC
     Route: 065
  3. CICLOSPORIN [Concomitant]
     Indication: HISTIOCYTOSIS HAEMATOPHAGIC
     Route: 065

REACTIONS (3)
  - Left ventricular hypertrophy [Recovering/Resolving]
  - Neutropenia [Unknown]
  - Diarrhoea [Unknown]
